FAERS Safety Report 9264044 (Version 2)
Quarter: 2013Q3

REPORT INFORMATION
  Report Type: Spontaneous
  Country: US (occurrence: US)
  Receive Date: 20130430
  Receipt Date: 20130726
  Transmission Date: 20140515
  Serious: Yes (Hospitalization, Other)
  Sender: FDA-Public Use
  Company Number: US-B.I. PHARMACEUTICALS,INC./RIDGEFIELD-2013-BI-11725BP

PATIENT
  Age: 65 Year
  Sex: Female
  Weight: 56.7 kg

DRUGS (10)
  1. PRADAXA [Suspect]
     Indication: ANTICOAGULANT THERAPY
     Dosage: 300 MG
     Route: 048
     Dates: start: 20111223, end: 20120114
  2. PRADAXA [Suspect]
     Indication: ATRIAL FIBRILLATION
  3. MELOXICAM [Suspect]
     Indication: ARTHRITIS
     Dosage: 15 MG
     Route: 048
     Dates: start: 2003, end: 20120114
  4. ASPIRIN [Suspect]
     Indication: CARDIAC DISORDER
     Dosage: 81 MG
     Route: 048
     Dates: start: 2003, end: 20120114
  5. LOSARTAN [Concomitant]
  6. LEXAPRO [Concomitant]
  7. NORVASC [Concomitant]
  8. AMIODARONE [Concomitant]
  9. ZYRTEC [Concomitant]
  10. PRAVASTATIN [Concomitant]

REACTIONS (2)
  - Gastrointestinal haemorrhage [Unknown]
  - Gastritis [Unknown]
